FAERS Safety Report 7410145-X (Version None)
Quarter: 2011Q2

REPORT INFORMATION
  Report Type: 
  Country: None (occurrence: None)
  Receive Date: 20110412
  Receipt Date: 20110407
  Transmission Date: 20111010
  Serious: Yes (Hospitalization, Other)
  Sender: FDA-Public Use
  Company Number: BR-ABBOTT-11P-020-0717604-00

PATIENT
  Sex: Female
  Weight: 60 kg

DRUGS (6)
  1. CALCIUM [Concomitant]
     Indication: PRODUCT USED FOR UNKNOWN INDICATION
  2. IRBESARTAN [Concomitant]
     Indication: BLOOD PRESSURE ABNORMAL
     Route: 048
  3. CORTICOID [Concomitant]
     Indication: RHEUMATOID ARTHRITIS
     Route: 048
  4. ISOFLAVONES [Concomitant]
     Indication: MENOPAUSE
  5. HIXIZINE [Concomitant]
     Indication: HYPERSENSITIVITY
  6. HUMIRA [Suspect]
     Indication: RHEUMATOID ARTHRITIS
     Route: 058
     Dates: end: 20110301

REACTIONS (2)
  - OSTEOARTHRITIS [None]
  - PRURITUS [None]
